FAERS Safety Report 10254843 (Version 1)
Quarter: 2014Q2

REPORT INFORMATION
  Report Type: Report from Study
  Country: US (occurrence: US)
  Receive Date: 20140624
  Receipt Date: 20140624
  Transmission Date: 20141212
  Serious: Yes (Other)
  Sender: FDA-Public Use
  Company Number: US-JNJFOC-20140613945

PATIENT
  Age: 51 Year
  Sex: Male
  Weight: 120.2 kg

DRUGS (4)
  1. REMICADE [Suspect]
     Indication: CROHN^S DISEASE
     Dosage: INITIATED AN ABOUT A YEAR AND A HALF PRIOR FROM REPORT DATE (ALSO CONFLICTINGLY REPORTED AS IN 2012)
     Route: 042
     Dates: start: 2012
  2. OMEPRAZOLE [Concomitant]
     Indication: CROHN^S DISEASE
     Route: 048
  3. OMEPRAZOLE [Concomitant]
     Indication: DYSPEPSIA
     Route: 048
  4. CITALOPRAM [Concomitant]
     Indication: ANXIETY
     Route: 048

REACTIONS (1)
  - Prostate cancer [Not Recovered/Not Resolved]
